FAERS Safety Report 6510724-8 (Version None)
Quarter: 2009Q4

REPORT INFORMATION
  Report Type: 
  Country: None (occurrence: None)
  Receive Date: 20091222
  Receipt Date: 20091022
  Transmission Date: 20100525
  Serious: No
  Sender: FDA-Public Use
  Company Number: US-ASTRAZENECA-2009SE21941

PATIENT
  Age: 817 Month
  Sex: Male
  Weight: 86.2 kg

DRUGS (7)
  1. CRESTOR [Suspect]
     Route: 048
     Dates: start: 20070101
  2. CRESTOR [Suspect]
     Route: 048
     Dates: start: 20090601
  3. ATENOLOL [Concomitant]
     Indication: HYPERTENSION
  4. HYDROCHLOROTHIAZIDE [Concomitant]
     Indication: HYPERTENSION
  5. LEXAPRO [Concomitant]
     Indication: ANXIETY
  6. LEXAPRO [Concomitant]
     Indication: DEPRESSION
  7. ASPIRIN [Concomitant]

REACTIONS (1)
  - BURNING SENSATION [None]
